FAERS Safety Report 17840052 (Version 1)
Quarter: 2020Q2

REPORT INFORMATION
  Report Type: Spontaneous
  Country: QZ (occurrence: QZ)
  Receive Date: 20200529
  Receipt Date: 20200529
  Transmission Date: 20200714
  Serious: Yes (Other)
  Sender: FDA-Public Use
  Company Number: None

PATIENT
  Age: 55 Year
  Sex: Male
  Weight: 135.8 kg

DRUGS (10)
  1. REMDESIVIR. [Suspect]
     Active Substance: REMDESIVIR
     Indication: COVID-19
     Route: 041
     Dates: start: 20200523, end: 20200527
  2. NOREPINEPHRINE. [Concomitant]
     Active Substance: NOREPINEPHRINE
     Dates: start: 20200524, end: 20200527
  3. FLUOXETINE [Concomitant]
     Active Substance: FLUOXETINE HYDROCHLORIDE
     Dates: start: 20200524, end: 20200528
  4. HYDROMORPHONE [Concomitant]
     Active Substance: HYDROMORPHONE
     Dates: start: 20200524, end: 20200527
  5. CEFTRIAXONE. [Concomitant]
     Active Substance: CEFTRIAXONE
     Dates: start: 20200523
  6. MIDAZOLAM. [Concomitant]
     Active Substance: MIDAZOLAM
     Dates: start: 20200524, end: 20200527
  7. ROCURONIUM [Concomitant]
     Active Substance: ROCURONIUM BROMIDE
     Dates: start: 20200524, end: 20200525
  8. PROPOFOL. [Concomitant]
     Active Substance: PROPOFOL
     Dates: start: 20200524, end: 20200528
  9. FENTANYL. [Concomitant]
     Active Substance: FENTANYL
     Dates: start: 20200524, end: 20200527
  10. HEPARIN [Concomitant]
     Active Substance: HEPARIN SODIUM
     Dates: start: 20200524

REACTIONS (1)
  - Blood bilirubin increased [None]

NARRATIVE: CASE EVENT DATE: 20200528
